FAERS Safety Report 8484790-7 (Version None)
Quarter: 2012Q3

REPORT INFORMATION
  Report Type: 
  Country: None (occurrence: None)
  Receive Date: 20120703
  Receipt Date: 20120622
  Transmission Date: 20120928
  Serious: Yes (Hospitalization)
  Sender: FDA-Public Use
  Company Number: FR-SANOFI-AVENTIS-2012SA045068

PATIENT
  Age: 41 Year
  Sex: Male

DRUGS (6)
  1. LOVENOX [Suspect]
     Route: 058
     Dates: start: 20120502, end: 20120514
  2. ROVAMYCIN [Concomitant]
     Dosage: DOSE:3 MILLIUNIT(S)
     Route: 048
     Dates: start: 20120507, end: 20120521
  3. ROVAMYCIN [Concomitant]
     Dosage: DOSE:1.5 MILLIUNIT(S)
     Route: 042
     Dates: start: 20120502, end: 20120507
  4. CEFTRIAXONE [Suspect]
     Route: 042
     Dates: start: 20120502, end: 20120507
  5. AMOXICILLIN AND CLAVULANATE POTASSIUM [Suspect]
     Route: 048
     Dates: start: 20120507, end: 20120509
  6. CODEINE SULFATE [Suspect]
     Indication: PAIN
     Route: 048
     Dates: start: 20120502, end: 20120514

REACTIONS (1)
  - AGRANULOCYTOSIS [None]
